FAERS Safety Report 18795222 (Version 1)
Quarter: 2021Q1

REPORT INFORMATION
  Report Type: Report from Study
  Country: BR (occurrence: BR)
  Receive Date: 20210127
  Receipt Date: 20210127
  Transmission Date: 20210419
  Serious: Yes (Hospitalization)
  Sender: FDA-Public Use
  Company Number: NVSC2021BR015939

PATIENT
  Age: 58 Year
  Weight: 74.2 kg

DRUGS (2)
  1. ENTRESTO [Suspect]
     Active Substance: SACUBITRIL\VALSARTAN
     Indication: CARDIAC FAILURE
     Dosage: DOSE CHANGED
     Route: 065
  2. ENTRESTO [Suspect]
     Active Substance: SACUBITRIL\VALSARTAN
     Dosage: 100 DF (49/51 MG)
     Route: 065
     Dates: start: 20201228

REACTIONS (6)
  - Peripheral swelling [Unknown]
  - Fluid retention [Unknown]
  - Tachycardia [Unknown]
  - Weight increased [Unknown]
  - Dyspnoea [Unknown]
  - Polyuria [Unknown]

NARRATIVE: CASE EVENT DATE: 20210111
